FAERS Safety Report 7708708-7 (Version None)
Quarter: 2011Q3

REPORT INFORMATION
  Report Type: 
  Country: None (occurrence: None)
  Receive Date: 20110819
  Receipt Date: 20110803
  Transmission Date: 20111222
  Serious: Yes (Hospitalization, Other)
  Sender: FDA-Public Use
  Company Number: 2011MA008870

PATIENT
  Age: 1 Day
  Sex: Male

DRUGS (1)
  1. PAREGORIC LIQUID USP (ALPHARMA) (PAREGORIC) [Suspect]
     Indication: DRUG WITHDRAWAL SYNDROME NEONATAL
     Dosage: 0.5 MG/KG;QD;

REACTIONS (8)
  - FOETAL GROWTH RESTRICTION [None]
  - CAESAREAN SECTION [None]
  - CLONIC CONVULSION [None]
  - DRUG WITHDRAWAL SYNDROME NEONATAL [None]
  - MATERNAL DRUGS AFFECTING FOETUS [None]
  - BREECH PRESENTATION [None]
  - HYPOGLYCAEMIA NEONATAL [None]
  - CONVULSION NEONATAL [None]
